FAERS Safety Report 10050386 (Version 1)
Quarter: 2014Q2

REPORT INFORMATION
  Report Type: Spontaneous
  Country: GB (occurrence: GB)
  Receive Date: 20140401
  Receipt Date: 20140401
  Transmission Date: 20141212
  Serious: Yes (Hospitalization)
  Sender: FDA-Public Use
  Company Number: GB-BRISTOL-MYERS SQUIBB COMPANY-20560439

PATIENT
  Age: 51 Year
  Sex: Female

DRUGS (22)
  1. FORXIGA [Suspect]
     Indication: TYPE 2 DIABETES MELLITUS
  2. CLOPIDOGREL BISULFATE [Concomitant]
     Dosage: TABS
  3. CLOTRIMAZOLE [Concomitant]
     Dosage: 1% CREAM
     Route: 061
  4. DOMPERIDONE [Concomitant]
     Dosage: TABS
  5. FENTANYL [Concomitant]
     Dosage: 1DF:25MCG/H,1 PATCH.
     Route: 062
  6. FERROUS FUMARATE [Concomitant]
     Dosage: TABS
  7. HYDROXYZINE [Concomitant]
     Dosage: NIGHT,TABS
  8. LEVOTHYROXINE SODIUM [Concomitant]
     Dosage: MORNING,TABS
  9. METFORMIN [Concomitant]
     Dosage: TABS
  10. MIRTAZAPINE [Concomitant]
     Dosage: NIGHT,TABS
  11. MONTELUKAST [Concomitant]
     Dosage: NIGHT,TABS
  12. OMEPRAZOLE [Concomitant]
     Dosage: MORNING,GASTRO-RESISTENCE CAPS
  13. ORLISTAT [Concomitant]
     Dosage: CAPS
  14. PEPPERMINT OIL [Concomitant]
     Dosage: 1 CAPSULE = 0.2ML,GASTRO-RESISTENCE CAPS
  15. QUETIAPINE [Concomitant]
     Dosage: NIGHT,MODIFIED RELEASE TABS
  16. RAMIPRIL [Concomitant]
     Dosage: CAPS
  17. SALBUTAMOL [Concomitant]
     Route: 045
  18. SIMVASTATIN [Concomitant]
     Dosage: NIGHT,TABS
  19. SOLIFENACIN SUCCINATE [Concomitant]
     Dosage: TABS
  20. SYMBICORT [Concomitant]
     Dosage: 1-2 PUFFS.
     Route: 045
  21. ZOPICLONE [Concomitant]
     Dosage: NIGHT,TABS
  22. INSULIN [Concomitant]
     Dosage: STOPPED PRIOR TO STARTING FORXIGA.
     Dates: end: 2014

REACTIONS (3)
  - Hyperglycaemia [Recovered/Resolved]
  - Thirst [Unknown]
  - Lethargy [Unknown]
